FAERS Safety Report 15104257 (Version 1)
Quarter: 2018Q2

REPORT INFORMATION
  Report Type: Spontaneous
  Country: US (occurrence: US)
  Receive Date: 20180611
  Receipt Date: 20180611
  Transmission Date: 20180711
  Serious: Yes (Life-Threatening, Other)
  Sender: FDA-Public Use
  Company Number: None

PATIENT
  Age: 62 Year
  Sex: Female
  Weight: 75.15 kg

DRUGS (4)
  1. PRAVASTATIN. [Concomitant]
     Active Substance: PRAVASTATIN
  2. TROPICAMIDE  1% [Suspect]
     Active Substance: TROPICAMIDE
     Indication: MYDRIASIS
     Dosage: ?          OTHER FREQUENCY:JUST FOR EXAM;?
     Route: 047
     Dates: start: 20180605, end: 20180605
  3. BABY ASPIRIN [Concomitant]
     Active Substance: ASPIRIN
  4. EFFIENT [Concomitant]
     Active Substance: PRASUGREL HYDROCHLORIDE

REACTIONS (1)
  - Angina pectoris [None]

NARRATIVE: CASE EVENT DATE: 20180605
